FAERS Safety Report 9341334 (Version 1)
Quarter: 2013Q2

REPORT INFORMATION
  Report Type: Spontaneous
  Country: US (occurrence: None)
  Receive Date: 20130610
  Receipt Date: 20130610
  Transmission Date: 20140414
  Serious: Yes (Other)
  Sender: FDA-Public Use
  Company Number: None

PATIENT
  Age: 59 Year
  Sex: Female
  Weight: 108.86 kg

DRUGS (1)
  1. ADALIMUMAB [Suspect]
     Indication: RHEUMATOID ARTHRITIS
     Route: 030
     Dates: start: 20130301, end: 20130506

REACTIONS (6)
  - Drug hypersensitivity [None]
  - Urticaria [None]
  - Pruritus [None]
  - Angioedema [None]
  - Refusal of treatment by patient [None]
  - Lip oedema [None]
